FAERS Safety Report 8525320-0 (Version None)
Quarter: 2012Q3

REPORT INFORMATION
  Report Type: 
  Country: None (occurrence: None)
  Receive Date: 20120720
  Receipt Date: 20120717
  Transmission Date: 20120928
  Serious: Yes (Disabling)
  Sender: FDA-Public Use
  Company Number: DK-TEVA-348604ISR

PATIENT
  Sex: Male

DRUGS (2)
  1. FOLININSYRE [Concomitant]
     Indication: VITAMIN SUPPLEMENTATION
     Dates: start: 20110519, end: 20111229
  2. METHOTREXATE [Suspect]
     Indication: PEMPHIGOID
     Dosage: DOSE: 15-20 MG ONCE PER WEEK. STRENGTH: 2.5 MG
     Route: 048
     Dates: start: 20110519, end: 20111229

REACTIONS (3)
  - GLAUCOMA [None]
  - AGE-RELATED MACULAR DEGENERATION [None]
  - CATARACT [None]
